FAERS Safety Report 9461929 (Version 1)
Quarter: 2013Q3

REPORT INFORMATION
  Report Type: Spontaneous
  Country: FR (occurrence: FR)
  Receive Date: 20130816
  Receipt Date: 20130816
  Transmission Date: 20140515
  Serious: Yes (Hospitalization, Other)
  Sender: FDA-Public Use
  Company Number: FR-BAYER-2013-095511

PATIENT
  Age: 74 Year
  Sex: Male

DRUGS (9)
  1. NEXAVAR [Suspect]
     Indication: HEPATOCELLULAR CARCINOMA
     Dosage: 400 MG, BID
     Route: 048
     Dates: start: 20130112
  2. GLUCOPHAGE [Suspect]
     Dosage: 850 MG, TID
     Route: 048
  3. GLICLAZIDE [Suspect]
     Dosage: 60 MG, QD
     Route: 048
  4. TAHOR [Suspect]
     Dosage: 10 MG, QD
     Route: 048
  5. PLAVIX [Suspect]
     Dosage: 1 DF, QD
     Route: 048
  6. INEXIUM [Suspect]
     Dosage: 20 MG, QD
     Route: 048
  7. LOVENOX [Suspect]
     Dosage: 4000 IU, QD
     Route: 058
  8. LAMICTAL [Concomitant]
  9. TRIVASTAL [Concomitant]

REACTIONS (3)
  - Aphasia [Recovered/Resolved]
  - Partial seizures [Recovered/Resolved]
  - Altered state of consciousness [Recovered/Resolved]
